FAERS Safety Report 6137724-4 (Version None)
Quarter: 2009Q1

REPORT INFORMATION
  Report Type: 
  Country: None (occurrence: None)
  Receive Date: 20090331
  Receipt Date: 20090327
  Transmission Date: 20090719
  Serious: Yes (Other)
  Sender: FDA-Public Use
  Company Number: US-BAYER-200913867NA

PATIENT
  Age: 61 Year
  Sex: Female

DRUGS (11)
  1. CIPROFLOXACIN HCL [Suspect]
     Indication: PROPHYLAXIS
     Dates: start: 20070812
  2. NEORAL [Suspect]
     Indication: LIVER TRANSPLANT
     Dosage: TOTAL DAILY DOSE: 600 MG  UNIT DOSE: 300 MG
     Route: 048
     Dates: start: 20070509
  3. PREDNISONE [Concomitant]
     Dates: start: 20070510
  4. ACTIGALL [Concomitant]
     Dates: start: 20070601
  5. VALCYTE [Concomitant]
     Dates: start: 20070507
  6. MULTI-VITAMIN [Concomitant]
     Dates: start: 20070608
  7. INSULIN [Concomitant]
  8. INDERAL [Concomitant]
     Dates: start: 20070727, end: 20070818
  9. ADALAT [Concomitant]
     Dates: start: 20070813, end: 20070816
  10. AUGMENTIN '125' [Concomitant]
     Dates: start: 20070813, end: 20070818
  11. PROTONIX [Concomitant]

REACTIONS (4)
  - HYPERSENSITIVITY [None]
  - HYPERTENSION [None]
  - OEDEMA [None]
  - RASH MACULAR [None]
